FAERS Safety Report 22127439 (Version 1)
Quarter: 2023Q1

REPORT INFORMATION
  Report Type: Spontaneous
  Country: US (occurrence: US)
  Receive Date: 20230322
  Receipt Date: 20230322
  Transmission Date: 20230418
  Serious: No
  Sender: FDA-Public Use
  Company Number: US-ALLERGAN-2224049US

PATIENT

DRUGS (2)
  1. CELEXA [Suspect]
     Active Substance: CITALOPRAM HYDROBROMIDE
     Indication: Product used for unknown indication
  2. AJOVY [Concomitant]
     Active Substance: FREMANEZUMAB-VFRM
     Indication: Migraine

REACTIONS (3)
  - Illness [Unknown]
  - Syncope [Unknown]
  - Vomiting [Unknown]
